FAERS Safety Report 9306388 (Version 1)
Quarter: 2013Q2

REPORT INFORMATION
  Report Type: Spontaneous
  Country: US (occurrence: US)
  Receive Date: 20130523
  Receipt Date: 20130523
  Transmission Date: 20140414
  Serious: No
  Sender: FDA-Public Use
  Company Number: US-BAYER-2013-063779

PATIENT
  Sex: Male

DRUGS (2)
  1. BAYER GENUINE ASPIRIN ORIGINAL STRENGTH [Suspect]
     Route: 048
  2. ALEVE TABLET [Suspect]
     Route: 048

REACTIONS (2)
  - Abdominal discomfort [None]
  - Incorrect drug administration duration [None]
